FAERS Safety Report 18480577 (Version 1)
Quarter: 2020Q4

REPORT INFORMATION
  Report Type: Spontaneous
  Country: AU (occurrence: AU)
  Receive Date: 20201109
  Receipt Date: 20201109
  Transmission Date: 20210114
  Serious: Yes (Life-Threatening, Hospitalization)
  Sender: FDA-Public Use
  Company Number: AU-MYLANLABS-2020M1093039

PATIENT
  Age: 17 Year
  Sex: Male

DRUGS (2)
  1. CANDESARTAN. [Suspect]
     Active Substance: CANDESARTAN
     Indication: PROPHYLAXIS
     Dosage: 8 MILLIGRAM, QD, EVERY MORNING
     Route: 065
  2. ALBUMIN [Concomitant]
     Active Substance: ALBUMIN HUMAN
     Indication: PRODUCT USED FOR UNKNOWN INDICATION
     Dosage: 1.1 LITER INFUSED OVER AN HOUR

REACTIONS (1)
  - Vasoplegia syndrome [Recovered/Resolved]
